FAERS Safety Report 5712625-1 (Version None)
Quarter: 2008Q2

REPORT INFORMATION
  Report Type: 
  Country: None (occurrence: None)
  Receive Date: 20080422
  Receipt Date: 20080416
  Transmission Date: 20081010
  Serious: Yes (Hospitalization)
  Sender: FDA-Public Use
  Company Number: US-GILEAD-2008-0016116

PATIENT
  Sex: Female
  Weight: 63.56 kg

DRUGS (8)
  1. LETAIRIS [Suspect]
     Indication: PULMONARY HYPERTENSION
     Route: 048
     Dates: start: 20071001
  2. TADALAFIL [Concomitant]
  3. ARIXTRA [Concomitant]
  4. LASIX [Concomitant]
  5. ALDACTONE [Concomitant]
  6. OXYGEN [Concomitant]
  7. CYTOXAN [Concomitant]
     Indication: BREAST CANCER
     Dates: start: 20070901, end: 20071201
  8. TAXOTERE [Concomitant]
     Indication: BREAST CANCER
     Dates: start: 20070901, end: 20071201

REACTIONS (1)
  - BREAST CANCER RECURRENT [None]
